FAERS Safety Report 11124698 (Version 3)
Quarter: 2015Q3

REPORT INFORMATION
  Report Type: Spontaneous
  Country: US (occurrence: US)
  Receive Date: 20150520
  Receipt Date: 20150810
  Transmission Date: 20151125
  Serious: Yes (Life-Threatening, Hospitalization)
  Sender: FDA-Public Use
  Company Number: US-BAYER-2015-245239

PATIENT
  Age: 24 Year
  Sex: Female
  Weight: 64.85 kg

DRUGS (1)
  1. MIRENA [Suspect]
     Active Substance: LEVONORGESTREL
     Indication: CONTRACEPTION
     Dosage: 20 MCG/24HR, CONT
     Route: 015
     Dates: start: 20120511, end: 20130618

REACTIONS (11)
  - Device difficult to use [None]
  - Pyrexia [None]
  - Device issue [Recovered/Resolved]
  - Uterine perforation [Recovered/Resolved]
  - Chills [None]
  - Dyspareunia [None]
  - Injury [None]
  - General physical health deterioration [None]
  - Pelvic pain [None]
  - Infection [None]
  - Uterine spasm [None]

NARRATIVE: CASE EVENT DATE: 201207
